FAERS Safety Report 10654079 (Version 1)
Quarter: 2014Q4

REPORT INFORMATION
  Report Type: Spontaneous
  Country: US (occurrence: None)
  Receive Date: 20141215
  Receipt Date: 20141215
  Transmission Date: 20150529
  Serious: No
  Sender: FDA-Public Use
  Company Number: None

PATIENT
  Age: 57 Year
  Sex: Male
  Weight: 98.3 kg

DRUGS (1)
  1. NORTRIPTYLINE [Suspect]
     Active Substance: NORTRIPTYLINE
     Indication: PAIN
     Dates: start: 20140529, end: 20140611

REACTIONS (6)
  - Insomnia [None]
  - Asphyxia [None]
  - Lethargy [None]
  - Agitation [None]
  - Drug intolerance [None]
  - Muscle twitching [None]

NARRATIVE: CASE EVENT DATE: 20140611
